FAERS Safety Report 11069050 (Version 2)
Quarter: 2015Q2

REPORT INFORMATION
  Report Type: Spontaneous
  Country: CZ (occurrence: CZ)
  Receive Date: 20150427
  Receipt Date: 20150511
  Transmission Date: 20150821
  Serious: Yes (Death, Hospitalization)
  Sender: FDA-Public Use
  Company Number: CZ-ACTELION-A-CH2015-116640

PATIENT
  Age: 68 Year
  Sex: Female
  Weight: 61 kg

DRUGS (6)
  1. MEDROL [Concomitant]
     Active Substance: METHYLPREDNISOLONE
     Indication: SYSTEMIC SCLEROSIS
     Dosage: 8 MG, QD
     Route: 048
     Dates: start: 2008
  2. RHEFLUIN [Concomitant]
     Indication: HYPERTENSION
     Dosage: 2.5 MG, QD
     Route: 048
     Dates: start: 2008
  3. MYGREF [Suspect]
     Active Substance: MYCOPHENOLATE MOFETIL
     Indication: SYSTEMIC SCLEROSIS
     Dosage: 500 MG, QID
     Route: 048
     Dates: start: 20150201, end: 20150315
  4. CONTROLOC [Concomitant]
     Active Substance: PANTOPRAZOLE SODIUM
     Indication: GASTRIC ULCER
     Dosage: 40 MG, QD
     Route: 048
     Dates: start: 2010
  5. ITOPRID [Concomitant]
     Dosage: 50 MG, TID
     Route: 048
     Dates: start: 2010
  6. STAYVEER [Suspect]
     Active Substance: BOSENTAN\BOSENTAN MONOHYDRATE
     Indication: SCLERODERMA ASSOCIATED DIGITAL ULCER
     Dosage: 62.5 MG, BID
     Route: 048
     Dates: start: 20150227, end: 20150315

REACTIONS (8)
  - Systemic sclerosis [Unknown]
  - Pulmonary fibrosis [None]
  - Asphyxia [None]
  - Respiratory tract infection [None]
  - Completed suicide [Fatal]
  - Skin ulcer [Unknown]
  - Weight decreased [Unknown]
  - Respiratory disorder [None]

NARRATIVE: CASE EVENT DATE: 20150315
